FAERS Safety Report 13367323 (Version 1)
Quarter: 2017Q1

REPORT INFORMATION
  Report Type: Spontaneous
  Country: US (occurrence: US)
  Receive Date: 20170324
  Receipt Date: 20170324
  Transmission Date: 20170429
  Serious: No
  Sender: FDA-Public Use
  Company Number: US-009507513-1703USA010832

PATIENT
  Age: 63 Year
  Sex: Male

DRUGS (2)
  1. TEMODAR [Suspect]
     Active Substance: TEMOZOLOMIDE
     Dosage: 12 CYCLES AT 200 MG/M2 FOR FIVE DAYS OUT OF EACH 28-DAY CYCLE
  2. TEMODAR [Suspect]
     Active Substance: TEMOZOLOMIDE
     Indication: MALIGNANT PITUITARY TUMOUR
     Dosage: 75 MG/M2, QD

REACTIONS (1)
  - Product use issue [Unknown]
